FAERS Safety Report 18045743 (Version 1)
Quarter: 2020Q3

REPORT INFORMATION
  Report Type: Report from Study
  Country: KR (occurrence: KR)
  Receive Date: 20200720
  Receipt Date: 20200720
  Transmission Date: 20201103
  Serious: Yes (Hospitalization)
  Sender: FDA-Public Use
  Company Number: KR-JNJFOC-20200622580

PATIENT
  Age: 48 Year
  Sex: Male

DRUGS (44)
  1. STELARA [Suspect]
     Active Substance: USTEKINUMAB
     Route: 058
     Dates: start: 20190925
  2. STELARA [Suspect]
     Active Substance: USTEKINUMAB
     Route: 058
     Dates: start: 20200320
  3. INDENOL [Concomitant]
     Active Substance: PROPRANOLOL HYDROCHLORIDE
     Indication: TREMOR
     Route: 048
     Dates: start: 20111124
  4. TRIZELE [Concomitant]
     Active Substance: METRONIDAZOLE
     Indication: ABSCESS
  5. EPINEPHRINE. [Concomitant]
     Active Substance: EPINEPHRINE
     Indication: ANAESTHESIA
     Route: 042
     Dates: start: 20200603, end: 20200603
  6. ONDANSETRON HYDROCHLORIDE. [Concomitant]
     Active Substance: ONDANSETRON HYDROCHLORIDE
     Indication: PROPHYLAXIS OF NAUSEA AND VOMITING
     Route: 042
     Dates: start: 20200603, end: 20200603
  7. LABESIN [Concomitant]
     Indication: PRODUCT USED FOR UNKNOWN INDICATION
  8. PETHIDINE [Concomitant]
     Active Substance: MEPERIDINE
     Indication: PAIN
     Dates: start: 20200603, end: 20200603
  9. PHAZYME                            /06269601/ [Concomitant]
     Indication: DECREASED APPETITE
  10. YAMATETAN [Concomitant]
     Indication: INFECTION
  11. CHLORPHENAMINE MALEATE [Concomitant]
     Active Substance: CHLORPHENIRAMINE MALEATE
     Indication: PROPHYLAXIS
     Dates: start: 20200113, end: 20200113
  12. WINUF [Concomitant]
     Indication: NUTRITIONAL SUPPLEMENTATION
     Route: 042
     Dates: start: 20200116, end: 20200120
  13. FENTANYL CITRATE. [Concomitant]
     Active Substance: FENTANYL CITRATE
     Route: 042
  14. STELARA [Suspect]
     Active Substance: USTEKINUMAB
     Route: 058
     Dates: start: 20191218
  15. CEBETABS [Concomitant]
     Indication: TREMOR
     Route: 048
     Dates: start: 20030329
  16. TRIAXONE [Concomitant]
     Indication: URINARY TRACT INFECTION
     Route: 042
     Dates: start: 20200113, end: 20200127
  17. IOPIDINE                           /00948501/ [Concomitant]
     Indication: PRODUCT USED FOR UNKNOWN INDICATION
     Dates: start: 20200122, end: 20200129
  18. NORMIX [Concomitant]
     Active Substance: RIFAXIMIN
     Indication: INFECTION PROPHYLAXIS
     Route: 048
     Dates: start: 20200602, end: 20200602
  19. STELARA [Suspect]
     Active Substance: USTEKINUMAB
     Route: 058
     Dates: start: 20200515
  20. KETOCIN                            /00321701/ [Concomitant]
     Indication: PAIN
     Route: 042
     Dates: start: 20200603, end: 20200603
  21. ZOPYRIN [Concomitant]
     Indication: CROHN^S DISEASE
  22. BAYER ASPIRIN [Concomitant]
     Active Substance: ASPIRIN
     Indication: PAIN
     Dates: start: 20200629, end: 20200630
  23. DEXTROSE + NAK [Concomitant]
  24. STELARA [Suspect]
     Active Substance: USTEKINUMAB
     Indication: CROHN^S DISEASE
     Route: 042
     Dates: start: 20190731
  25. TRIAXONE [Concomitant]
     Indication: ABSCESS
  26. TRIZELE [Concomitant]
     Active Substance: METRONIDAZOLE
     Indication: URINARY TRACT INFECTION
     Dates: start: 20200113, end: 20200127
  27. LOPERAMIDE HYDROCHLORIDE. [Concomitant]
     Active Substance: LOPERAMIDE HYDROCHLORIDE
     Indication: DIARRHOEA
     Route: 048
     Dates: start: 20200122, end: 20200129
  28. CHLORPHENAMINE MALEATE [Concomitant]
     Active Substance: CHLORPHENIRAMINE MALEATE
     Indication: PROPHYLAXIS
     Dates: start: 20200116
  29. GASTER                             /00661201/ [Concomitant]
     Active Substance: OMEPRAZOLE
     Indication: PROPHYLAXIS
     Route: 042
     Dates: start: 20200602, end: 20200602
  30. EPHEDRINE HYDROCHLORIDE [Concomitant]
     Active Substance: EPHEDRINE HYDROCHLORIDE
     Indication: POST PROCEDURAL HAEMORRHAGE
     Route: 042
     Dates: start: 20200603, end: 20200603
  31. ATROPINE SULFATE. [Concomitant]
     Active Substance: ATROPINE SULFATE
     Indication: BRADYCARDIA
     Route: 042
     Dates: start: 20200603, end: 20200603
  32. PHAZYME                            /06269601/ [Concomitant]
     Indication: DYSPEPSIA
     Route: 048
     Dates: start: 20200604, end: 20200604
  33. TAMIPOOL [Concomitant]
     Active Substance: VITAMINS
     Route: 042
     Dates: start: 20200116, end: 20200120
  34. FOLIC ACID. [Concomitant]
     Active Substance: FOLIC ACID
     Indication: PRODUCT USED FOR UNKNOWN INDICATION
     Dates: start: 20091112
  35. FEROBA U [Concomitant]
     Active Substance: FERROUS SULFATE
     Indication: PRODUCT USED FOR UNKNOWN INDICATION
     Route: 048
     Dates: start: 20090421
  36. NORMAL SALINE [Concomitant]
     Active Substance: SODIUM CHLORIDE
     Indication: ACUTE KIDNEY INJURY
     Dates: start: 20200113, end: 20200113
  37. MOXIFLOXACIN. [Concomitant]
     Active Substance: MOXIFLOXACIN
     Indication: PERINEAL ABSCESS
     Route: 048
     Dates: start: 20200128, end: 20200207
  38. SYLCON [Concomitant]
     Active Substance: CALCIUM POLYCARBOPHIL
     Indication: FISTULA REPAIR
  39. ARONAMIN?GOLD [Concomitant]
     Indication: TREMOR
     Route: 048
     Dates: start: 20031011
  40. CORTISOLU [Concomitant]
     Active Substance: HYDROCORTISONE SODIUM SUCCINATE
     Indication: PROPHYLAXIS
     Route: 042
     Dates: start: 20200116, end: 20200116
  41. KLENZO [Concomitant]
     Indication: INFECTION PROPHYLAXIS
     Route: 065
     Dates: start: 20200119, end: 20200129
  42. PICOSOLUTION [Concomitant]
     Indication: INFECTION PROPHYLAXIS
     Route: 048
     Dates: start: 20200202, end: 20200202
  43. NICARDIPINE HYDROCHLORIDE. [Concomitant]
     Active Substance: NICARDIPINE HYDROCHLORIDE
     Indication: PROPHYLAXIS
     Dates: start: 20200603, end: 20200603
  44. ULTRACET [Concomitant]
     Active Substance: ACETAMINOPHEN\TRAMADOL HYDROCHLORIDE
     Indication: PROCEDURAL PAIN

REACTIONS (2)
  - Seizure [Recovered/Resolved]
  - Anal fistula [Recovered/Resolved]

NARRATIVE: CASE EVENT DATE: 20200521
